FAERS Safety Report 6051236-8 (Version None)
Quarter: 2009Q1

REPORT INFORMATION
  Report Type: 
  Country: None (occurrence: None)
  Receive Date: 20090126
  Receipt Date: 20090115
  Transmission Date: 20090719
  Serious: Yes (Death, Hospitalization)
  Sender: FDA-Public Use
  Company Number: ES-PFIZER INC-2008086178

PATIENT

DRUGS (1)
  1. SUTENT [Suspect]
     Route: 048
     Dates: start: 20061106, end: 20070626

REACTIONS (5)
  - ASTHENIA [None]
  - ENCEPHALITIS [None]
  - MENINGEAL DISORDER [None]
  - URINARY TRACT INFECTION [None]
  - VOMITING [None]
